FAERS Safety Report 8312541-5 (Version None)
Quarter: 2012Q2

REPORT INFORMATION
  Report Type: 
  Country: None (occurrence: None)
  Receive Date: 20120425
  Receipt Date: 20120420
  Transmission Date: 20120825
  Serious: Yes (Hospitalization)
  Sender: FDA-Public Use
  Company Number: PHHY2012IT034412

PATIENT
  Sex: Female

DRUGS (2)
  1. LORAZEPAM [Suspect]
  2. BROMAZEPAM [Suspect]

REACTIONS (2)
  - RESPIRATORY ARREST [None]
  - LOSS OF CONSCIOUSNESS [None]
